FAERS Safety Report 8377351-1 (Version None)
Quarter: 2012Q2

REPORT INFORMATION
  Report Type: 
  Country: None (occurrence: None)
  Receive Date: 20120522
  Receipt Date: 20120518
  Transmission Date: 20120825
  Serious: Yes (Death)
  Sender: FDA-Public Use
  Company Number: US-ROCHE-1034385

PATIENT
  Sex: Male
  Weight: 80.812 kg

DRUGS (1)
  1. RITUXAN [Suspect]
     Indication: ACUTE LYMPHOCYTIC LEUKAEMIA
     Dosage: LAST DOSE: JUL/2009

REACTIONS (1)
  - CHRONIC LYMPHOCYTIC LEUKAEMIA [None]
